FAERS Safety Report 26036843 (Version 1)
Quarter: 2025Q4

REPORT INFORMATION
  Report Type: Spontaneous
  Country: US (occurrence: US)
  Receive Date: 20251112
  Receipt Date: 20251112
  Transmission Date: 20260118
  Serious: Yes (Other)
  Sender: PARATEK PHARMACEUTICALS
  Company Number: US-PARATEK PHARMACEUTICALS, INC.-2025PTK00535

PATIENT

DRUGS (2)
  1. NUZYRA [Suspect]
     Active Substance: OMADACYCLINE
     Indication: Skin bacterial infection
     Dosage: LOADING DOSE
     Route: 048
     Dates: start: 202504, end: 202504
  2. NUZYRA [Suspect]
     Active Substance: OMADACYCLINE
     Dosage: UNK
     Route: 048
     Dates: start: 202504, end: 202504

REACTIONS (1)
  - Atrial fibrillation [Recovered/Resolved]

NARRATIVE: CASE EVENT DATE: 20250401
